FAERS Safety Report 24768173 (Version 1)
Quarter: 2024Q4

REPORT INFORMATION
  Report Type: Spontaneous
  Country: US (occurrence: None)
  Receive Date: 20241223
  Receipt Date: 20241223
  Transmission Date: 20250115
  Serious: Yes (Disabling)
  Sender: Public
  Company Number: None

PATIENT
  Sex: Male

DRUGS (1)
  1. CYMBALTA [Suspect]
     Active Substance: DULOXETINE HYDROCHLORIDE
     Indication: Pain
     Dates: start: 20100101, end: 20190501

REACTIONS (8)
  - Sexual dysfunction [None]
  - Coeliac disease [None]
  - Erectile dysfunction [None]
  - Drug ineffective [None]
  - Penile size reduced [None]
  - Penile burning sensation [None]
  - Genital hypoaesthesia [None]
  - Libido disorder [None]
